FAERS Safety Report 21123498 (Version 1)
Quarter: 2022Q3

REPORT INFORMATION
  Report Type: Spontaneous
  Country: US (occurrence: None)
  Receive Date: 20220724
  Receipt Date: 20220724
  Transmission Date: 20221026
  Serious: No
  Sender: FDA-Public Use
  Company Number: 2022A258664

PATIENT
  Age: 845 Month
  Sex: Male
  Weight: 73.5 kg

DRUGS (1)
  1. BUDESONIDE\FORMOTEROL\GLYCOPYRRONIUM [Suspect]
     Active Substance: BUDESONIDE\FORMOTEROL\GLYCOPYRRONIUM
     Indication: Chronic obstructive pulmonary disease
     Dosage: STARTED 160MCG/9MCG/4.8MCG BREZTRI, 2 PUFFS TWICE DAILY FOR COPD APPROXIMATELY 4 MONTHS AGO
     Route: 055

REACTIONS (5)
  - Anxiety [Unknown]
  - Dysphonia [Unknown]
  - Intentional device misuse [Unknown]
  - Wrong technique in device usage process [Unknown]
  - Device delivery system issue [Unknown]

NARRATIVE: CASE EVENT DATE: 20220701
